FAERS Safety Report 23395610 (Version 1)
Quarter: 2024Q1

REPORT INFORMATION
  Report Type: Spontaneous
  Country: CN (occurrence: CN)
  Receive Date: 20240112
  Receipt Date: 20240112
  Transmission Date: 20240409
  Serious: Yes (Hospitalization, Other)
  Sender: FDA-Public Use
  Company Number: None

PATIENT
  Age: 19 Year
  Sex: Female
  Weight: 55 kg

DRUGS (12)
  1. CYCLOPHOSPHAMIDE [Suspect]
     Active Substance: CYCLOPHOSPHAMIDE
     Indication: Acute lymphocytic leukaemia
     Dosage: 1.2 G, ONCE A DAY (DILUTED WITH 0.9% SODIUM CHLORIDE INJECTION 250 ML)
     Route: 041
     Dates: start: 20231128, end: 20231128
  2. CYCLOPHOSPHAMIDE [Suspect]
     Active Substance: CYCLOPHOSPHAMIDE
     Indication: Gene mutation
     Dosage: 1.2G, ONCE A DAY (DILUTED WITH 0.9% SODIUM CHLORIDE INJECTION 250 ML)
     Route: 041
     Dates: start: 20231205, end: 20231205
  3. CYCLOPHOSPHAMIDE [Suspect]
     Active Substance: CYCLOPHOSPHAMIDE
     Indication: B-cell type acute leukaemia
  4. CYCLOPHOSPHAMIDE [Suspect]
     Active Substance: CYCLOPHOSPHAMIDE
     Indication: Chemotherapy
  5. SODIUM CHLORIDE [Suspect]
     Active Substance: SODIUM CHLORIDE
     Indication: Medication dilution
     Dosage: 0.9% INJECTION, 250 ML, ONCE A DAY (USED TO DILUTE 1.2G OF CYCLOPHOSPHAMIDE)
     Route: 041
     Dates: start: 20231128, end: 20231128
  6. SODIUM CHLORIDE [Suspect]
     Active Substance: SODIUM CHLORIDE
     Dosage: 0.9% INJECTION,  250 ML,ONCE A DAY (USED TO DILUTE 1.2 G OF CYCLOPHOSPHAMIDE)
     Route: 041
     Dates: start: 20231205, end: 20231205
  7. SODIUM CHLORIDE [Suspect]
     Active Substance: SODIUM CHLORIDE
     Dosage: 0.9% INJECTION, 500 ML, ONCE A DAY (USED TO DILUTE 160 MG OF CYTARABINE HYDROCHLORIDE)
     Route: 041
     Dates: start: 20231128, end: 20231130
  8. SODIUM CHLORIDE [Suspect]
     Active Substance: SODIUM CHLORIDE
     Dosage: 0.9% INJECTION, 500ML, ONCE A DAY (USED TO DILUTE 160 MG OF CYTARABINE HYDROCHLORIDE)
     Route: 041
     Dates: start: 20231205, end: 20231207
  9. CYTARABINE HYDROCHLORIDE [Suspect]
     Active Substance: CYTARABINE HYDROCHLORIDE
     Indication: Acute lymphocytic leukaemia
     Dosage: 160 MG,ONCE A DAY (DILUTED WITH 0.9% SODIUM CHLORIDE INJECTION 500ML)
     Route: 041
     Dates: start: 20231128, end: 20231130
  10. CYTARABINE HYDROCHLORIDE [Suspect]
     Active Substance: CYTARABINE HYDROCHLORIDE
     Indication: Gene mutation
     Dosage: 160 MG, ONCE A DAY (DILUTED WITH 0.9% SODIUM CHLORIDE INJECTION 500ML)
     Route: 041
     Dates: start: 20231205, end: 20231207
  11. CYTARABINE HYDROCHLORIDE [Suspect]
     Active Substance: CYTARABINE HYDROCHLORIDE
     Indication: B-cell type acute leukaemia
  12. CYTARABINE HYDROCHLORIDE [Suspect]
     Active Substance: CYTARABINE HYDROCHLORIDE
     Indication: Chemotherapy

REACTIONS (1)
  - Myelosuppression [Recovering/Resolving]

NARRATIVE: CASE EVENT DATE: 20231212
